FAERS Safety Report 15436543 (Version 2)
Quarter: 2018Q4

REPORT INFORMATION
  Report Type: Spontaneous
  Country: TW (occurrence: TW)
  Receive Date: 20180927
  Receipt Date: 20181128
  Transmission Date: 20190204
  Serious: Yes (Other)
  Sender: FDA-Public Use
  Company Number: TW-PFIZER INC-2018383758

PATIENT
  Age: 75 Year
  Sex: Female

DRUGS (4)
  1. GENIQUIN [Concomitant]
     Indication: RHEUMATOID ARTHRITIS
     Dosage: 200 MG, DAILY
  2. XELJANZ [Suspect]
     Active Substance: TOFACITINIB CITRATE
     Indication: RHEUMATOID ARTHRITIS
     Dosage: 3 DF, CYCLIC (1 DF ON ODD DAYS, 2DF ON EVEN DAYS)
     Route: 048
     Dates: start: 20170825
  3. ARHEUMA [Concomitant]
     Indication: RHEUMATOID ARTHRITIS
     Dosage: 20 MG, DAILY
  4. XELJANZ [Suspect]
     Active Substance: TOFACITINIB CITRATE
     Dosage: 5 MG, QD
     Route: 048
     Dates: start: 20181123

REACTIONS (2)
  - Product use issue [Unknown]
  - Oesophageal ulcer [Not Recovered/Not Resolved]

NARRATIVE: CASE EVENT DATE: 20170825
